FAERS Safety Report 15766708 (Version 3)
Quarter: 2019Q3

REPORT INFORMATION
  Report Type: Report from Study
  Country: CA (occurrence: CA)
  Receive Date: 20181227
  Receipt Date: 20190916
  Transmission Date: 20191004
  Serious: Yes (Other)
  Sender: FDA-Public Use
  Company Number: CA-TEVA-2018-CA-992758

PATIENT

DRUGS (13)
  1. URSODEOXYCHOLIC ACID [Concomitant]
     Active Substance: URSODIOL
     Dosage: STARTING ON THE FIRST DAY OF CONDITIONING WITH MEALS
     Route: 048
  2. ACYCLOVIR. [Concomitant]
     Active Substance: ACYCLOVIR
     Indication: ANTIVIRAL PROPHYLAXIS
     Route: 065
  3. POSACONAZOLE [Concomitant]
     Active Substance: POSACONAZOLE
     Indication: ANTIFUNGAL PROPHYLAXIS
     Dosage: 300 MILLIGRAM DAILY;
     Route: 065
  4. THYMOGLOBULIN [Suspect]
     Active Substance: LAPINE T-LYMPHOCYTE IMMUNE GLOBULIN
     Indication: BONE MARROW CONDITIONING REGIMEN
     Dosage: ON DAYS -2 AND -1 PRIOR TO ALLOGENEIC HAEMATOPOIETIC STEM CELL TRANSPLANTATION
     Route: 042
  5. CYCLOPHOSPHAMIDE. [Suspect]
     Active Substance: CYCLOPHOSPHAMIDE
     Indication: PROPHYLAXIS AGAINST GRAFT VERSUS HOST DISEASE
     Dosage: 50 MG/KG DAILY; ON DAYS 3 AND 4 POST-ALLOGENEIC HAEMATOPOIETIC STEM CELL TRANSPLANTATION
     Route: 042
  6. CYCLOSPORINE. [Suspect]
     Active Substance: CYCLOSPORINE
     Indication: PROPHYLAXIS AGAINST GRAFT VERSUS HOST DISEASE
     Dosage: 5 MG/KG DAILY;
     Route: 042
  7. MESNA. [Suspect]
     Active Substance: MESNA
     Indication: PROPHYLAXIS AGAINST GRAFT VERSUS HOST DISEASE
     Dosage: FOUR DOSES OF MESNA AT A TOTAL DAILY DOSE OF 80% OF THE CYCLOPHOSPHAMIDE DOSE ON DAYS 3 AND 4 POS...
     Route: 065
  8. THYMOGLOBULIN [Suspect]
     Active Substance: LAPINE T-LYMPHOCYTE IMMUNE GLOBULIN
     Indication: BONE MARROW CONDITIONING REGIMEN
     Dosage: .5 MG/KG DAILY; ON DAYS -3 PRIOR TO ALLOGENEIC HAEMATOPOIETIC STEM CELL TRANSPLANTATION
     Route: 042
  9. FLUDARABINE [Suspect]
     Active Substance: FLUDARABINE PHOSPHATE
     Indication: BONE MARROW CONDITIONING REGIMEN
     Dosage: 30 MG/M2 DAILY; ON DAYS -5 TO -2 PRIOR TO ALLOGENEIC HAEMATOPOIETIC STEM CELL TRANSPLANTATION
     Route: 042
  10. BUSULFAN. [Suspect]
     Active Substance: BUSULFAN
     Indication: BONE MARROW CONDITIONING REGIMEN
     Dosage: 3.2 MG/M2 DAILY; ON DAYS -3 AND -2 PRIOR TO ALLOGENEIC HAEMATOPOIETIC STEM CELL TRANSPLANTATION
     Route: 042
  11. FILGRASTIM [Concomitant]
     Active Substance: FILGRASTIM
     Dosage: 300 MICROGRAM DAILY; STARTED ON DAY 7 POST-ALLOGENEIC HAEMATOPOIETIC STEM CELL TRANSPLANTATION UNTIL
     Route: 058
  12. CIPROFLOXACIN. [Concomitant]
     Active Substance: CIPROFLOXACIN
     Indication: PROPHYLAXIS
     Route: 065
  13. PENTAMIDINE [Concomitant]
     Active Substance: PENTAMIDINE
     Indication: PROPHYLAXIS
     Route: 055

REACTIONS (1)
  - Cytomegalovirus colitis [Unknown]
